FAERS Safety Report 11112417 (Version 1)
Quarter: 2015Q2

REPORT INFORMATION
  Report Type: Report from Study
  Country: TR (occurrence: TR)
  Receive Date: 20150514
  Receipt Date: 20150514
  Transmission Date: 20150821
  Serious: Yes (Other)
  Sender: FDA-Public Use
  Company Number: TR-BAYER-2015-215232

PATIENT
  Age: 31 Year

DRUGS (6)
  1. ACETYLSALICYLIC ACID [Suspect]
     Active Substance: ASPIRIN
     Indication: EUPHORIC MOOD
     Dosage: UNK
     Route: 042
  2. EPHEDRINE [Suspect]
     Active Substance: EPHEDRINE
     Indication: EUPHORIC MOOD
     Dosage: UNK
     Route: 042
  3. POTASSIUM PERMANGANATE [Suspect]
     Active Substance: POTASSIUM PERMANGANATE
     Indication: EUPHORIC MOOD
     Dosage: UNK
     Route: 042
  4. ACETYLSALICYLIC ACID [Suspect]
     Active Substance: ASPIRIN
     Indication: SEXUAL INHIBITION
  5. EPHEDRINE [Suspect]
     Active Substance: EPHEDRINE
     Indication: SEXUAL INHIBITION
  6. POTASSIUM PERMANGANATE [Suspect]
     Active Substance: POTASSIUM PERMANGANATE
     Indication: SEXUAL INHIBITION

REACTIONS (3)
  - Metal poisoning [None]
  - Drug abuse [None]
  - Parkinsonism [None]
